FAERS Safety Report 9365103 (Version 1)
Quarter: 2013Q2

REPORT INFORMATION
  Report Type: Spontaneous
  Country: US (occurrence: US)
  Receive Date: 20130624
  Receipt Date: 20130624
  Transmission Date: 20140414
  Serious: Yes (Hospitalization)
  Sender: FDA-Public Use
  Company Number: US-B.I. PHARMACEUTICALS,INC./RIDGEFIELD-2013-BI-13044BP

PATIENT
  Age: 83 Year
  Sex: Female
  Weight: 63.5 kg

DRUGS (5)
  1. PRADAXA [Suspect]
     Indication: ANTICOAGULANT THERAPY
     Dosage: 300 MG
     Route: 048
     Dates: start: 20110705, end: 20111122
  2. LASIX [Concomitant]
     Dosage: 40 MG
     Route: 048
  3. DIGOXIN [Concomitant]
     Dosage: 0.125 MG
     Route: 048
  4. ZOCOR [Concomitant]
     Dosage: 20 MG
     Route: 048
  5. ZOLOFT [Concomitant]
     Dosage: 20 MG
     Route: 048

REACTIONS (1)
  - Gastrointestinal haemorrhage [Unknown]
